FAERS Safety Report 17246755 (Version 1)
Quarter: 2020Q1

REPORT INFORMATION
  Report Type: Report from Study
  Country: JP (occurrence: JP)
  Receive Date: 20200108
  Receipt Date: 20200108
  Transmission Date: 20200409
  Serious: Yes (Death, Other)
  Sender: FDA-Public Use
  Company Number: NVSJ2019JP006372

PATIENT
  Age: 41 Year
  Sex: Female
  Weight: 34.6 kg

DRUGS (6)
  1. CALSED [Concomitant]
     Active Substance: AMRUBICIN HYDROCHLORIDE
     Indication: APPENDIX CANCER
     Dosage: 50 MG,UNK
     Route: 041
     Dates: start: 20181130, end: 20181202
  2. PAREPLUS [Concomitant]
     Active Substance: AMINO ACIDS\DEXTROSE\ELECTROLYTES NOS\VITAMINS
     Indication: APPENDIX CANCER
     Dosage: 1000 ML,UNK
     Route: 041
     Dates: start: 20181108, end: 20191123
  3. FULCALIQ [Concomitant]
     Active Substance: AMINO ACIDS\CARBOHYDRATES\ELECTROLYTES NOS\VITAMINS
     Indication: APPENDIX CANCER
     Dosage: 1806 ML,UNK
     Route: 041
     Dates: start: 20181124, end: 20190105
  4. FILGRASTIM BS INJ. SYRINGE [Suspect]
     Active Substance: FILGRASTIM
     Indication: NEUTROPENIA
     Dosage: 50 ?G/M2, QD
     Route: 058
     Dates: start: 20181208, end: 20181216
  5. OXIFAST [Concomitant]
     Active Substance: OXYCODONE
     Indication: APPENDIX CANCER
     Dosage: 50 MG,UNK
     Route: 041
     Dates: start: 20181204, end: 20190105
  6. AVASTIN [Concomitant]
     Active Substance: BEVACIZUMAB
     Indication: APPENDIX CANCER
     Dosage: 500 MG
     Route: 041
     Dates: start: 20181130, end: 20181130

REACTIONS (6)
  - Appendix cancer [Fatal]
  - Platelet count decreased [Recovered/Resolved]
  - White blood cell count increased [Recovered/Resolved]
  - Malignant neoplasm progression [Fatal]
  - C-reactive protein increased [Not Recovered/Not Resolved]
  - Neutrophil count increased [Unknown]

NARRATIVE: CASE EVENT DATE: 20181214
